FAERS Safety Report 4501504-3 (Version None)
Quarter: 2004Q4

REPORT INFORMATION
  Report Type: 
  Country: None (occurrence: None)
  Receive Date: 20041109
  Receipt Date: 20041026
  Transmission Date: 20050328
  Serious: No
  Sender: FDA-Public Use
  Company Number: 2004240123GB

PATIENT
  Age: 65 Year
  Sex: Female
  Weight: 51 kg

DRUGS (14)
  1. ESTRACYT (ESTRAMUSTINE PHOSPHATE) CAPSULE [Suspect]
     Indication: METASTATIC MALIGNANT MELANOMA
     Dosage: SEE IMAGE
     Route: 048
     Dates: start: 20040624, end: 20040721
  2. ESTRACYT (ESTRAMUSTINE PHOSPHATE) CAPSULE [Suspect]
     Indication: METASTATIC MALIGNANT MELANOMA
     Dosage: SEE IMAGE
     Route: 048
     Dates: start: 20040729, end: 20040729
  3. TEMOZOLOMIDE (TEMOZOLOMIDE) [Suspect]
     Indication: METASTATIC MALIGNANT MELANOMA
     Dosage: 145 MG, ORAL
     Route: 048
     Dates: start: 20040624
  4. ZOTON [Concomitant]
  5. NYTOL (SALICYLAMIDE, METHAPYRILENE HYDROCHLORIDE) [Concomitant]
  6. LACTULOSE [Concomitant]
  7. ZOFRAN [Concomitant]
  8. LORAZEPAM [Concomitant]
  9. SENNA (SENNA) [Concomitant]
  10. VOLTAREN [Concomitant]
  11. CO-CODAMOL [Concomitant]
  12. FLUOXETINE [Concomitant]
  13. MOTILIUM [Concomitant]
  14. LOPEDIUM [Concomitant]

REACTIONS (5)
  - BLOOD ALKALINE PHOSPHATASE INCREASED [None]
  - PLATELET COUNT INCREASED [None]
  - SURGERY [None]
  - VOMITING [None]
  - WHITE BLOOD CELL COUNT INCREASED [None]
